FAERS Safety Report 19420148 (Version 1)
Quarter: 2021Q2

REPORT INFORMATION
  Report Type: Report from Study
  Country: IN (occurrence: IN)
  Receive Date: 20210615
  Receipt Date: 20210615
  Transmission Date: 20210717
  Serious: Yes (Death, Hospitalization)
  Sender: FDA-Public Use
  Company Number: NVSC2021IN134253

PATIENT
  Age: 50 Year
  Sex: Male
  Weight: 68 kg

DRUGS (3)
  1. CERTICAN [Suspect]
     Active Substance: EVEROLIMUS
     Indication: RENAL TRANSPLANT
     Dosage: 0.5 MG, BID
     Route: 065
     Dates: start: 20191119
  2. MYFORTIC [Suspect]
     Active Substance: MYCOPHENOLATE SODIUM
     Indication: RENAL TRANSPLANT
     Dosage: 360 MG, BID
     Route: 065
     Dates: start: 20191119
  3. TACSANT [Suspect]
     Active Substance: TACROLIMUS
     Indication: RENAL TRANSPLANT
     Dosage: 1 MG, BID
     Route: 065
     Dates: start: 20191119

REACTIONS (2)
  - SARS-CoV-2 test positive [Fatal]
  - Renal failure [Fatal]

NARRATIVE: CASE EVENT DATE: 20210524
